FAERS Safety Report 7666730-3 (Version None)
Quarter: 2011Q3

REPORT INFORMATION
  Report Type: 
  Country: None (occurrence: None)
  Receive Date: 20110806
  Receipt Date: 20110629
  Transmission Date: 20111222
  Serious: No
  Sender: FDA-Public Use
  Company Number: US-ABBOTT-11P-163-0835862-00

PATIENT
  Sex: Male
  Weight: 76.272 kg

DRUGS (7)
  1. METOPROLOL TARTRATE [Concomitant]
     Indication: HYPERTENSION
  2. LOSARTAN POTASSIUM [Concomitant]
     Indication: HYPERTENSION
  3. ASPIRIN [Concomitant]
     Indication: PROPHYLAXIS
  4. NIASPAN [Suspect]
     Indication: BLOOD CHOLESTEROL INCREASED
     Dosage: AT BEDTIME
     Dates: start: 20080101
  5. LOVASTATIN [Concomitant]
     Indication: BLOOD CHOLESTEROL INCREASED
  6. ASPIRIN [Concomitant]
     Indication: CARDIAC DISORDER
  7. ZETIA [Concomitant]
     Indication: BLOOD CHOLESTEROL INCREASED

REACTIONS (3)
  - ERYTHEMA [None]
  - PRURITUS [None]
  - RASH MACULAR [None]
